FAERS Safety Report 4867180-5 (Version None)
Quarter: 2005Q4

REPORT INFORMATION
  Report Type: 
  Country: None (occurrence: None)
  Receive Date: 20051222
  Receipt Date: 20051108
  Transmission Date: 20060501
  Serious: Yes (Death)
  Sender: FDA-Public Use
  Company Number: MK200512-0252-1

PATIENT
  Age: 14 Month
  Sex: Male

DRUGS (2)
  1. OXYCODONE HCL [Suspect]
     Dosage: PO
     Route: 048
     Dates: start: 20040101
  2. ACETAMINOPHEN [Suspect]
     Dosage: PO
     Route: 048
     Dates: start: 20040101

REACTIONS (4)
  - ACIDOSIS [None]
  - BRAIN DEATH [None]
  - CARDIO-RESPIRATORY ARREST [None]
  - DRUG SCREEN POSITIVE [None]
